FAERS Safety Report 9003763 (Version 1)
Quarter: 2013Q1

REPORT INFORMATION
  Report Type: Spontaneous
  Country: US (occurrence: US)
  Receive Date: 20130108
  Receipt Date: 20130108
  Transmission Date: 20140127
  Serious: No
  Sender: FDA-Public Use
  Company Number: US-GLAXOSMITHKLINE-A0974803A

PATIENT
  Age: 56 Year
  Sex: Female

DRUGS (6)
  1. LOVAZA [Suspect]
     Indication: BLOOD TRIGLYCERIDES INCREASED
     Dosage: 4CAP PER DAY
     Route: 048
     Dates: start: 20120417, end: 20120421
  2. LANOXIN [Concomitant]
  3. CENTRUM [Concomitant]
  4. CALCIUM WITH VITAMIN D [Concomitant]
  5. VITAMIN C [Concomitant]
  6. FLONASE [Concomitant]

REACTIONS (3)
  - Abdominal pain upper [Unknown]
  - Pruritus generalised [Unknown]
  - Dysgeusia [Unknown]
